FAERS Safety Report 6428231-X (Version None)
Quarter: 2009Q4

REPORT INFORMATION
  Report Type: 
  Country: None (occurrence: None)
  Receive Date: 20091028
  Receipt Date: 20091015
  Transmission Date: 20100525
  Serious: Yes (Hospitalization, Other)
  Sender: FDA-Public Use
  Company Number: THYM-1001248

PATIENT

DRUGS (4)
  1. THYMOGLOBULIN [Suspect]
     Indication: RENAL TRANSPLANT
     Dosage: INTRAVENOUS
     Route: 042
  2. ADVAGRAF (TACROLIMUS) [Concomitant]
  3. CELLCEPT [Concomitant]
  4. SOLU-DECORTIN H (PREDNISOLONE) [Concomitant]

REACTIONS (1)
  - RENAL GRAFT LOSS [None]
